FAERS Safety Report 15820710 (Version 1)
Quarter: 2018Q4

REPORT INFORMATION
  Report Type: Spontaneous
  Country: US (occurrence: US)
  Receive Date: 20181217
  Receipt Date: 20181217
  Transmission Date: 20190205
  Serious: Yes (Other)
  Sender: FDA-Public Use
  Company Number: None

PATIENT
  Age: 69 Year
  Sex: Male
  Weight: 86.18 kg

DRUGS (7)
  1. DAILY VITAMIN [Concomitant]
     Active Substance: VITAMINS
  2. FINASTERIDE. [Suspect]
     Active Substance: FINASTERIDE
     Indication: ALOPECIA
     Dosage: ?          QUANTITY:1 MG MILLIGRAM(S);?
     Route: 048
     Dates: start: 20180109
  3. PROPECIA [Concomitant]
     Active Substance: FINASTERIDE
  4. ASPIRIN 81MG [Concomitant]
     Active Substance: ASPIRIN
  5. GLUCOSAMINE [Concomitant]
     Active Substance: GLUCOSAMINE
  6. BIOTIN [Concomitant]
     Active Substance: BIOTIN
  7. VITAMIN B3 [Concomitant]
     Active Substance: NIACIN

REACTIONS (4)
  - Manufacturing materials issue [None]
  - Therapeutic response changed [None]
  - Product complaint [None]
  - Alopecia [None]

NARRATIVE: CASE EVENT DATE: 201811
